FAERS Safety Report 13511174 (Version 4)
Quarter: 2017Q3

REPORT INFORMATION
  Report Type: Spontaneous
  Country: FR (occurrence: FR)
  Receive Date: 20170503
  Receipt Date: 20170929
  Transmission Date: 20171127
  Serious: Yes (Hospitalization)
  Sender: FDA-Public Use
  Company Number: FR-009507513-1705FRA001620

PATIENT
  Age: 86 Year
  Sex: Male

DRUGS (8)
  1. PANTOPRAZOLE [Concomitant]
     Active Substance: PANTOPRAZOLE
     Indication: GASTROOESOPHAGEAL REFLUX DISEASE
     Dosage: 1 DF, ONCE DAILY (IN THE EVENING)
     Route: 048
  2. KARDEGIC [Concomitant]
     Active Substance: ASPIRIN LYSINE
     Indication: PERIPHERAL ARTERIAL OCCLUSIVE DISEASE
     Dosage: 1 DF (75), ONCE DAILY (IN THE MIDDAY)
     Route: 048
  3. AUGMENTIN [Concomitant]
     Active Substance: AMOXICILLIN\CLAVULANATE POTASSIUM
     Indication: CARDIOVASCULAR DISORDER
     Dosage: UNK UNK, UNKNOWN FREQ.
     Route: 065
  4. PREVISCAN [Concomitant]
     Active Substance: FLUINDIONE
     Indication: ARRHYTHMIA
     Dosage: 1 DF, ONCE DAILY (IN THE EVENING)
     Route: 048
  5. FIDAXOMICIN [Suspect]
     Active Substance: FIDAXOMICIN
     Indication: CLOSTRIDIUM DIFFICILE INFECTION
     Dosage: 2 (200 MG TABLET), QD
     Route: 048
     Dates: start: 20170415, end: 20170424
  6. COTAREG [Concomitant]
     Active Substance: HYDROCHLOROTHIAZIDE\VALSARTAN
     Indication: HYPERTENSION
     Dosage: 1 DF (80/12.5), ONCE DAILY (IN THE MORNING)
     Route: 048
  7. UROREC [Concomitant]
     Active Substance: SILODOSIN
     Indication: URINARY RETENTION
     Dosage: 1 DF, ONCE DAILY (IN THE EVENING)
     Route: 048
     Dates: start: 20170401
  8. PREVISCAN [Concomitant]
     Active Substance: FLUINDIONE
     Indication: ATRIAL FIBRILLATION

REACTIONS (1)
  - Diarrhoea [Recovering/Resolving]

NARRATIVE: CASE EVENT DATE: 20170425
